FAERS Safety Report 7390809-7 (Version None)
Quarter: 2011Q2

REPORT INFORMATION
  Report Type: 
  Country: None (occurrence: None)
  Receive Date: 20110404
  Receipt Date: 20110325
  Transmission Date: 20111010
  Serious: No
  Sender: FDA-Public Use
  Company Number: US-BIOGENIDEC-2011BI011594

PATIENT
  Sex: Female

DRUGS (4)
  1. NEURONTIN [Concomitant]
     Indication: MUSCLE SPASMS
  2. BACLOFEN [Concomitant]
     Indication: MUSCLE SPASMS
  3. TYSABRI [Suspect]
     Indication: MULTIPLE SCLEROSIS
     Route: 042
     Dates: start: 20101027
  4. ACETAMINOPHEN [Concomitant]
     Indication: HEADACHE

REACTIONS (3)
  - HYPOAESTHESIA [None]
  - BACK PAIN [None]
  - NEURALGIA [None]
